FAERS Safety Report 9313057 (Version 1)
Quarter: 2013Q2

REPORT INFORMATION
  Report Type: Spontaneous
  Country: US (occurrence: US)
  Receive Date: 20130528
  Receipt Date: 20130528
  Transmission Date: 20140414
  Serious: No
  Sender: FDA-Public Use
  Company Number: US-ABBOTT-13P-163-1084854-00

PATIENT
  Age: 48 Year
  Sex: Male
  Weight: 108.96 kg

DRUGS (4)
  1. ANDROGEL [Suspect]
     Indication: BLOOD TESTOSTERONE DECREASED
     Route: 061
     Dates: start: 2011, end: 2012
  2. ANDROGEL [Suspect]
     Route: 061
     Dates: end: 201304
  3. ANDROGEL [Suspect]
     Route: 061
     Dates: start: 201304
  4. ANDROGEL [Suspect]
     Dosage: ANDROGEL 1% 10 GRAM DAILY
     Route: 061
     Dates: start: 2003, end: 2011

REACTIONS (3)
  - Blood testosterone increased [Not Recovered/Not Resolved]
  - Drug administered at inappropriate site [Not Recovered/Not Resolved]
  - Asthenia [Not Recovered/Not Resolved]
